FAERS Safety Report 4534444-4 (Version None)
Quarter: 2004Q4

REPORT INFORMATION
  Report Type: 
  Country: None (occurrence: None)
  Receive Date: 20041214
  Receipt Date: 20041027
  Transmission Date: 20050328
  Serious: No
  Sender: FDA-Public Use
  Company Number: 2004241916US

PATIENT
  Sex: Male

DRUGS (3)
  1. BEXTRA [Suspect]
     Indication: INJURY
     Dosage: 10 MG, QD, ORAL
     Route: 048
  2. UNSPECIFIED ALLERGY MEDICATION [Concomitant]
  3. UNSPECIFIED ASTHMA MEDICATION [Concomitant]

REACTIONS (1)
  - FALSE POSITIVE LABORATORY RESULT [None]
